FAERS Safety Report 5526776-8 (Version None)
Quarter: 2007Q4

REPORT INFORMATION
  Report Type: 
  Country: None (occurrence: None)
  Receive Date: 20071127
  Receipt Date: 20071116
  Transmission Date: 20080405
  Serious: Yes (Other)
  Sender: FDA-Public Use
  Company Number: CN-ROCHE-532374

PATIENT
  Age: 39 Year
  Sex: Female

DRUGS (4)
  1. XELODA [Suspect]
     Route: 048
     Dates: start: 20070801, end: 20070801
  2. XELODA [Suspect]
     Route: 048
  3. XELODA [Suspect]
     Route: 048
  4. OXALIPLATIN [Concomitant]
     Dosage: ROUTE: IVGTT
     Route: 042
     Dates: start: 20070801, end: 20070801

REACTIONS (5)
  - ANOREXIA [None]
  - DYSPNOEA [None]
  - FATIGUE [None]
  - HALLUCINATION [None]
  - SPEECH DISORDER [None]
